FAERS Safety Report 7988972-X (Version None)
Quarter: 2011Q4

REPORT INFORMATION
  Report Type: 
  Country: None (occurrence: None)
  Receive Date: 20111219
  Receipt Date: 20111206
  Transmission Date: 20120403
  Serious: Yes (Other)
  Sender: FDA-Public Use
  Company Number: US-RANBAXY-2011RR-50974

PATIENT
  Sex: Female

DRUGS (4)
  1. CIPROFLOXACIN [Suspect]
     Indication: INFECTION
     Dosage: UNK
     Route: 065
     Dates: start: 20100530, end: 20101007
  2. LEVAQUIN [Suspect]
     Indication: CHOLECYSTECTOMY
  3. LEVAQUIN [Suspect]
     Indication: INFECTION
     Dosage: 750 MG, UNK
     Route: 042
     Dates: start: 20100713
  4. LEVAQUIN [Suspect]
     Indication: BACTERIAL INFECTION
     Dosage: UNK
     Route: 048
     Dates: start: 20100701

REACTIONS (3)
  - TENDONITIS [None]
  - TENDON DISORDER [None]
  - DEPRESSION [None]
